FAERS Safety Report 11297292 (Version 1)
Quarter: 2015Q3

REPORT INFORMATION
  Report Type: Spontaneous
  Country: US (occurrence: US)
  Receive Date: 20150722
  Receipt Date: 20150722
  Transmission Date: 20151125
  Serious: No
  Sender: FDA-Public Use
  Company Number: US-ELI_LILLY_AND_COMPANY-US201103008302

PATIENT
  Age: 52 Year
  Sex: Female

DRUGS (2)
  1. EVISTA [Suspect]
     Active Substance: RALOXIFENE HYDROCHLORIDE
     Dosage: 1 DF, UNK
     Dates: end: 2005
  2. EVISTA [Suspect]
     Active Substance: RALOXIFENE HYDROCHLORIDE
     Dosage: 1 DF, UNK
     Dates: start: 2009, end: 2009

REACTIONS (3)
  - Muscle spasms [Unknown]
  - Headache [Unknown]
  - Uterine leiomyoma [Unknown]
